FAERS Safety Report 9543831 (Version 2)
Quarter: 2013Q3

REPORT INFORMATION
  Report Type: Spontaneous
  Country: BR (occurrence: BR)
  Receive Date: 20130923
  Receipt Date: 20130923
  Transmission Date: 20140515
  Serious: Yes (Hospitalization)
  Sender: FDA-Public Use
  Company Number: BR-009507513-1208BRA002215

PATIENT
  Sex: Female
  Weight: 89 kg

DRUGS (2)
  1. MERCILON CONTI [Suspect]
     Indication: CONTRACEPTION
     Dosage: UNK
     Dates: start: 2007, end: 20120614
  2. MERCILON CONTI [Suspect]
     Indication: PREMENSTRUAL SYNDROME

REACTIONS (4)
  - Appendicectomy [Unknown]
  - Depression [Not Recovered/Not Resolved]
  - Sleep disorder [Not Recovered/Not Resolved]
  - Off label use [Unknown]
